FAERS Safety Report 23220731 (Version 1)
Quarter: 2023Q4

REPORT INFORMATION
  Report Type: Report from Study
  Country: US (occurrence: US)
  Receive Date: 20231123
  Receipt Date: 20231123
  Transmission Date: 20240110
  Serious: Yes (Death, Hospitalization)
  Sender: FDA-Public Use
  Company Number: US-AstraZeneca-CH-00511735A

PATIENT
  Sex: Male

DRUGS (1)
  1. SOLIRIS [Suspect]
     Active Substance: ECULIZUMAB
     Indication: Myasthenia gravis
     Dosage: UNK
     Route: 065

REACTIONS (7)
  - Toxoplasmosis [Fatal]
  - Decreased immune responsiveness [Unknown]
  - Aphasia [Unknown]
  - Dysphagia [Unknown]
  - Central nervous system lesion [Unknown]
  - Haematological infection [Unknown]
  - Feeding disorder [Unknown]
